FAERS Safety Report 4510021-6 (Version None)
Quarter: 2004Q4

REPORT INFORMATION
  Report Type: 
  Country: None (occurrence: None)
  Receive Date: 20041119
  Receipt Date: 20041104
  Transmission Date: 20050328
  Serious: Yes (Hospitalization)
  Sender: FDA-Public Use
  Company Number: 8008053

PATIENT
  Sex: Male
  Weight: 60 kg

DRUGS (7)
  1. KEPPRA [Suspect]
     Indication: EPILEPSY
     Dosage: 3000 MG /D PO
     Route: 048
     Dates: start: 20040203, end: 20040607
  2. MYLEPSIN [Concomitant]
  3. DYTIDE [Concomitant]
  4. BELOC ZOK [Concomitant]
  5. DELIX [Concomitant]
  6. ASPIRIN [Concomitant]
  7. XIMOVAN [Concomitant]

REACTIONS (1)
  - GAMMA-GLUTAMYLTRANSFERASE INCREASED [None]
